FAERS Safety Report 7206779-8 (Version None)
Quarter: 2011Q1

REPORT INFORMATION
  Report Type: 
  Country: None (occurrence: None)
  Receive Date: 20110103
  Receipt Date: 20101224
  Transmission Date: 20110831
  Serious: Yes (Death, Other)
  Sender: FDA-Public Use
  Company Number: GB-TEVA-212627ISR

PATIENT
  Age: 33 Year
  Sex: Female
  Weight: 78 kg

DRUGS (4)
  1. CLOZAPINE [Suspect]
     Dates: start: 20050819
  2. VALPROATE SODIUM [Suspect]
     Indication: CONVULSION
     Route: 048
     Dates: start: 20090101, end: 20090507
  3. CLOZAPINE [Suspect]
     Indication: SCHIZOPHRENIA
     Route: 048
     Dates: start: 20050101, end: 20090507
  4. VENLAFAXINE [Suspect]
     Indication: DEPRESSION
     Route: 048
     Dates: start: 20050101, end: 20090507

REACTIONS (9)
  - ANTICONVULSANT DRUG LEVEL INCREASED [None]
  - VOMITING [None]
  - EPILEPSY [None]
  - DRUG INTERACTION [None]
  - ANTIDEPRESSANT DRUG LEVEL INCREASED [None]
  - CYANOSIS [None]
  - FALL [None]
  - SYNCOPE [None]
  - TOXICITY TO VARIOUS AGENTS [None]
